FAERS Safety Report 21342269 (Version 1)
Quarter: 2022Q3

REPORT INFORMATION
  Report Type: Spontaneous
  Country: US (occurrence: None)
  Receive Date: 20220915
  Receipt Date: 20220915
  Transmission Date: 20221026
  Serious: Yes (Disabling, Other)
  Sender: FDA-Public Use
  Company Number: None

PATIENT
  Age: 65 Year
  Sex: Female
  Weight: 112.5 kg

DRUGS (12)
  1. ZOLEDRONIC ACID [Suspect]
     Active Substance: ZOLEDRONIC ACID
     Indication: Osteoporosis
     Dosage: OTHER QUANTITY : 1 INFUSION;?OTHER FREQUENCY : ONCE;?
     Route: 042
     Dates: start: 20220819, end: 20220819
  2. ALBUTEROL SULFATE [Concomitant]
     Active Substance: ALBUTEROL SULFATE
  3. Amlodipine Besylate 10 mg/day [Concomitant]
  4. Levothyroxine Sodium 50 mcg/day [Concomitant]
  5. Advair Diskus 250-50 mcg/Act 2 times/day [Concomitant]
  6. Lisinopril 20 mg/day [Concomitant]
  7. Metoprolol Succinate ER 50 mg/day [Concomitant]
  8. Duloxetine HCL 90 mg/day [Concomitant]
  9. Financea 15% twice daily [Concomitant]
  10. Claritin as needed 10 mg/day [Concomitant]
  11. Calcium + D 1200 mg/day [Concomitant]
  12. Multivitamin 1/day [Concomitant]

REACTIONS (10)
  - Influenza like illness [None]
  - Iritis [None]
  - Iridocyclitis [None]
  - Dizziness [None]
  - Diplopia [None]
  - Sinusitis [None]
  - Eye haemorrhage [None]
  - Apathy [None]
  - Confusional state [None]
  - Discouragement [None]

NARRATIVE: CASE EVENT DATE: 20220819
